FAERS Safety Report 14289936 (Version 2)
Quarter: 2018Q1

REPORT INFORMATION
  Report Type: Other
  Country: FR (occurrence: FR)
  Receive Date: 20171215
  Receipt Date: 20180105
  Transmission Date: 20180509
  Serious: Yes (Death, Other)
  Sender: FDA-Public Use
  Company Number: FR-ACTELION-A-CH2017-164009

PATIENT
  Age: 69 Year
  Sex: Female

DRUGS (1)
  1. BOSENTAN. [Suspect]
     Active Substance: BOSENTAN
     Indication: PULMONARY ARTERIAL HYPERTENSION
     Dosage: UNK
     Route: 048
     Dates: start: 200905

REACTIONS (8)
  - Tooth abscess [Unknown]
  - Metrorrhagia [Fatal]
  - Mass [Fatal]
  - Cervix carcinoma recurrent [Fatal]
  - Metastases to nervous system [Fatal]
  - Metastases to liver [Fatal]
  - Neurotoxicity [Unknown]
  - Metastases to lung [Fatal]

NARRATIVE: CASE EVENT DATE: 2011
